FAERS Safety Report 5113362-7 (Version None)
Quarter: 2006Q3

REPORT INFORMATION
  Report Type: 
  Country: None (occurrence: None)
  Receive Date: 20060920
  Receipt Date: 20060908
  Transmission Date: 20061208
  Serious: Yes (Other)
  Sender: FDA-Public Use
  Company Number: 060154

PATIENT
  Sex: Female

DRUGS (1)
  1. NULYTELY [Suspect]
     Indication: COLONOSCOPY

REACTIONS (3)
  - BLOOD CALCIUM DECREASED [None]
  - CONVULSION [None]
  - HYPONATRAEMIA [None]
